FAERS Safety Report 6371618-4 (Version None)
Quarter: 2009Q3

REPORT INFORMATION
  Report Type: 
  Country: None (occurrence: None)
  Receive Date: 20090923
  Receipt Date: 20080804
  Transmission Date: 20100115
  Serious: No
  Sender: FDA-Public Use
  Company Number: US-ASTRAZENECA-2008UW05826

PATIENT
  Age: 62 Year
  Sex: Female
  Weight: 68 kg

DRUGS (4)
  1. SEROQUEL [Suspect]
     Indication: BIPOLAR DISORDER
     Route: 048
     Dates: start: 20030507, end: 20050701
  2. SEROQUEL [Suspect]
     Indication: DEPRESSION
     Route: 048
     Dates: start: 20030507, end: 20050701
  3. SEROQUEL [Suspect]
     Route: 048
     Dates: start: 20040803, end: 20060908
  4. SEROQUEL [Suspect]
     Route: 048
     Dates: start: 20040803, end: 20060908

REACTIONS (3)
  - DIABETES MELLITUS [None]
  - GLAUCOMA [None]
  - ILL-DEFINED DISORDER [None]
